FAERS Safety Report 5430681-5 (Version None)
Quarter: 2007Q3

REPORT INFORMATION
  Report Type: 
  Country: None (occurrence: None)
  Receive Date: 20070830
  Receipt Date: 20070820
  Transmission Date: 20080115
  Serious: Yes (Hospitalization)
  Sender: FDA-Public Use
  Company Number: DE-ABBOTT-07P-062-0378428-00

PATIENT
  Sex: Female
  Weight: 125 kg

DRUGS (3)
  1. HUMIRA [Suspect]
     Indication: RHEUMATOID ARTHRITIS
     Route: 058
     Dates: start: 20060701, end: 20070601
  2. TRAMAL LONG [Concomitant]
     Indication: RHEUMATOID ARTHRITIS
     Route: 048
  3. DICLOFENAC RESINATE [Concomitant]
     Indication: RHEUMATOID ARTHRITIS
     Route: 048

REACTIONS (2)
  - BURSITIS [None]
  - ERYSIPELAS [None]
